FAERS Safety Report 19012369 (Version 1)
Quarter: 2021Q1

REPORT INFORMATION
  Report Type: Spontaneous
  Country: US (occurrence: US)
  Receive Date: 20210316
  Receipt Date: 20210316
  Transmission Date: 20210420
  Serious: No
  Sender: FDA-Public Use
  Company Number: US-ASTRAZENECA-2021A099025

PATIENT
  Age: 22376 Day
  Sex: Female
  Weight: 81.6 kg

DRUGS (6)
  1. SYMBICORT [Suspect]
     Active Substance: BUDESONIDE\FORMOTEROL FUMARATE DIHYDRATE
     Indication: ASTHMA
     Dosage: 160/4.5MCG 2 PUFFS TWICE DAILY
     Route: 055
     Dates: start: 20210222
  2. SINMET [Concomitant]
  3. INSULIN [Concomitant]
     Active Substance: INSULIN NOS
  4. MIRAPEX [Concomitant]
     Active Substance: PRAMIPEXOLE DIHYDROCHLORIDE
  5. FEXOFENIDINE [Concomitant]
     Indication: ANTIALLERGIC THERAPY
  6. EXPECTORANT [Concomitant]
     Active Substance: GUAIFENESIN

REACTIONS (6)
  - Swelling of eyelid [Not Recovered/Not Resolved]
  - Eyelids pruritus [Not Recovered/Not Resolved]
  - Eye pain [Not Recovered/Not Resolved]
  - Sinus disorder [Unknown]
  - Erythema of eyelid [Not Recovered/Not Resolved]
  - Drug hypersensitivity [Unknown]

NARRATIVE: CASE EVENT DATE: 20210225
